FAERS Safety Report 4728812-5 (Version None)
Quarter: 2005Q3

REPORT INFORMATION
  Report Type: 
  Country: None (occurrence: None)
  Receive Date: 20050729
  Receipt Date: 20050414
  Transmission Date: 20060218
  Serious: Yes (Death, Hospitalization, Other)
  Sender: FDA-Public Use
  Company Number: 2005AP02278

PATIENT
  Age: 18923 Day
  Sex: Male
  Weight: 65.2 kg

DRUGS (17)
  1. IRESSA [Suspect]
     Indication: LUNG ADENOCARCINOMA
     Route: 048
     Dates: start: 20050325, end: 20050411
  2. DECADRON [Suspect]
     Indication: METASTASES TO CENTRAL NERVOUS SYSTEM
     Dates: start: 20050324, end: 20050413
  3. VOLTAREN [Concomitant]
     Indication: PAIN
     Route: 054
     Dates: start: 20050324
  4. VOLTAREN [Concomitant]
     Dates: start: 20050412, end: 20050412
  5. GLYCEOL [Concomitant]
     Indication: METASTASES TO CENTRAL NERVOUS SYSTEM
  6. RADIATION THERAPY [Concomitant]
     Dosage: ADMINISTERED TO CHEST REGION (66 GY)
     Dates: start: 20040915
  7. RADIATION THERAPY [Concomitant]
     Dosage: ADMINISTERED TO WHOLE BRAIN (30 GY)
     Dates: start: 20050329, end: 20050411
  8. CALONAL [Concomitant]
     Indication: ANTIPYRESIS
     Route: 048
     Dates: start: 20050402, end: 20050413
  9. PURSENNID [Concomitant]
     Indication: CONSTIPATION
     Route: 048
     Dates: start: 20050402, end: 20050408
  10. RESTAMIN [Concomitant]
     Indication: RASH
     Dates: start: 20050409
  11. MEDICON [Concomitant]
     Indication: COUGH
     Route: 048
     Dates: start: 20050326, end: 20050407
  12. CISPLATIN [Concomitant]
     Dosage: 2 COURSES
     Dates: start: 20040914
  13. VINDESINE [Concomitant]
     Dosage: 2 COURSES
     Dates: start: 20040914
  14. CARBOPLATIN [Concomitant]
     Dosage: 2 COURSES
     Dates: start: 20041012
  15. PACLITAXEL [Concomitant]
     Dosage: 2 COURSES
     Dates: start: 20041012
  16. GEMCITABINE [Concomitant]
     Dosage: 2 COURSES
     Dates: start: 20050101
  17. VINORELBINE [Concomitant]
     Dosage: 2 COURSES
     Dates: start: 20050101

REACTIONS (11)
  - ALANINE AMINOTRANSFERASE INCREASED [None]
  - BLOOD ALKALINE PHOSPHATASE INCREASED [None]
  - BLOOD GLUCOSE INCREASED [None]
  - CARDIAC FAILURE [None]
  - DYSPHONIA [None]
  - HEPATIC FUNCTION ABNORMAL [None]
  - METASTASES TO CENTRAL NERVOUS SYSTEM [None]
  - PNEUMOTHORAX [None]
  - RASH [None]
  - SEPSIS [None]
  - SHOCK [None]
